FAERS Safety Report 6582541-4 (Version None)
Quarter: 2010Q1

REPORT INFORMATION
  Report Type: 
  Country: None (occurrence: None)
  Receive Date: 20100212
  Receipt Date: 20100212
  Transmission Date: 20100710
  Serious: No
  Sender: FDA-Public Use
  Company Number: None

PATIENT
  Age: 64 Year
  Sex: Male
  Weight: 115 kg

DRUGS (1)
  1. OMNIPAQUE 140 [Suspect]
     Indication: SURGERY
     Dates: start: 20091223, end: 20091223

REACTIONS (4)
  - EYELID OEDEMA [None]
  - RASH [None]
  - SWELLING FACE [None]
  - URTICARIA [None]
